FAERS Safety Report 9618330 (Version 1)
Quarter: 2013Q4

REPORT INFORMATION
  Report Type: Spontaneous
  Country: DE (occurrence: DE)
  Receive Date: 20131014
  Receipt Date: 20131014
  Transmission Date: 20140711
  Serious: Yes (Hospitalization, Other)
  Sender: FDA-Public Use
  Company Number: DE-009507513-1310DEU004095

PATIENT
  Age: 49 Year
  Sex: Male
  Weight: 70 kg

DRUGS (3)
  1. SIMVASTATIN [Suspect]
     Route: 048
  2. FENOFIBRATE [Suspect]
     Route: 048
  3. TRAMADOL HYDROCHLORIDE [Suspect]
     Route: 048

REACTIONS (1)
  - Convulsion [Recovered/Resolved]
